FAERS Safety Report 15821435 (Version 1)
Quarter: 2019Q1

REPORT INFORMATION
  Report Type: Spontaneous
  Country: US (occurrence: US)
  Receive Date: 20190114
  Receipt Date: 20190114
  Transmission Date: 20190417
  Serious: No
  Sender: FDA-Public Use
  Company Number: US-BAYER-2019-005569

PATIENT
  Sex: Female

DRUGS (2)
  1. MIRENA [Suspect]
     Active Substance: LEVONORGESTREL
  2. MIRENA [Suspect]
     Active Substance: LEVONORGESTREL
     Dosage: 20 MCG/24HR, CONT
     Route: 015
     Dates: start: 201406

REACTIONS (6)
  - Menorrhagia [Recovered/Resolved]
  - Amenorrhoea [Recovered/Resolved]
  - Breast pain [None]
  - Abdominal pain lower [Recovered/Resolved]
  - Vaginal discharge [Not Recovered/Not Resolved]
  - Urinary tract infection [None]

NARRATIVE: CASE EVENT DATE: 201812
